FAERS Safety Report 6339748-0 (Version None)
Quarter: 2009Q3

REPORT INFORMATION
  Report Type: 
  Country: None (occurrence: None)
  Receive Date: 20090903
  Receipt Date: 20090901
  Transmission Date: 20100115
  Serious: Yes (Death, Life-Threatening, Hospitalization)
  Sender: FDA-Public Use
  Company Number: US-SANOFI-SYNTHELABO-F01200700185

PATIENT
  Sex: Male

DRUGS (4)
  1. NORVASC [Concomitant]
     Route: 065
     Dates: end: 20070126
  2. OXALIPLATIN [Suspect]
     Indication: COLORECTAL CANCER METASTATIC
     Route: 041
  3. CAPECITABINE [Suspect]
     Dosage: 6500 MG DAILY ON DAYS 1-7 EVERY 14 DAYS
     Route: 048
  4. BEVACIZUMAB [Suspect]
     Route: 042
     Dates: start: 20061228

REACTIONS (2)
  - ASTHENIA [None]
  - CARDIAC ARREST [None]
